FAERS Safety Report 5914916-8 (Version None)
Quarter: 2008Q4

REPORT INFORMATION
  Report Type: 
  Country: None (occurrence: None)
  Receive Date: 20081010
  Receipt Date: 20081010
  Transmission Date: 20090506
  Serious: Yes (Hospitalization)
  Sender: FDA-Public Use
  Company Number: PHEH2000US00670

PATIENT
  Sex: Male
  Weight: 94 kg

DRUGS (12)
  1. MYCOPHENOLIC ACID [Suspect]
     Dosage: 720 MG, BID
     Route: 048
     Dates: start: 20000107
  2. PREDNISONE [Concomitant]
  3. SANDIMMUNE [Suspect]
     Route: 048
     Dates: start: 20000107
  4. ASPIRIN [Concomitant]
  5. CALCIUM [Concomitant]
  6. RANITIDINE [Concomitant]
  7. GANCICLOVIR [Concomitant]
  8. PERICOLACE (PERI-COLACE) [Concomitant]
  9. MULTIVITAMIN (MULTIVIT) [Concomitant]
  10. BACTRIM [Concomitant]
  11. INSULIN REGULAR (INSULIN) [Concomitant]
  12. ATENOLOL [Concomitant]

REACTIONS (1)
  - VOMITING [None]
